FAERS Safety Report 13897980 (Version 2)
Quarter: 2017Q4

REPORT INFORMATION
  Report Type: Spontaneous
  Country: JP (occurrence: JP)
  Receive Date: 20170823
  Receipt Date: 20171005
  Transmission Date: 20180320
  Serious: Yes (Life-Threatening, Hospitalization)
  Sender: FDA-Public Use
  Company Number: JP-BAUSCH-BL-2017-025186

PATIENT

DRUGS (3)
  1. VANCOMYCIN [Suspect]
     Active Substance: VANCOMYCIN
     Indication: GASTROENTERITIS CLOSTRIDIAL
     Route: 065
  2. CRAVIT [Suspect]
     Active Substance: LEVOFLOXACIN
     Indication: ENTEROCOLITIS
     Dosage: INTRAVENOUS INFUSION
     Route: 041
  3. METRONIDAZOLE. [Suspect]
     Active Substance: METRONIDAZOLE
     Indication: GASTROENTERITIS CLOSTRIDIAL
     Route: 042

REACTIONS (4)
  - Pseudomembranous colitis [Recovered/Resolved]
  - Septic shock [Recovered/Resolved]
  - Megacolon [Recovered/Resolved]
  - Dehydration [Recovered/Resolved]
